FAERS Safety Report 5460575-0 (Version None)
Quarter: 2007Q3

REPORT INFORMATION
  Report Type: 
  Country: None (occurrence: None)
  Receive Date: 20070919
  Receipt Date: 20070907
  Transmission Date: 20080115
  Serious: Yes (Other)
  Sender: FDA-Public Use
  Company Number: US-PFIZER INC-2007075746

PATIENT
  Sex: Male
  Weight: 93.181 kg

DRUGS (10)
  1. LYRICA [Suspect]
     Indication: HYPOAESTHESIA
     Dates: start: 20070801, end: 20070907
  2. LYRICA [Suspect]
     Indication: PARAESTHESIA
  3. DIAZEPAM [Concomitant]
  4. LISINOPRIL [Concomitant]
  5. ALL OTHER THERAPEUTIC PRODUCTS [Concomitant]
  6. METFORMIN HCL [Concomitant]
  7. ASPIRIN [Concomitant]
  8. PROTONIX [Concomitant]
  9. VYTORIN [Concomitant]
  10. SEREVENT [Concomitant]

REACTIONS (2)
  - DYSSTASIA [None]
  - WEIGHT INCREASED [None]
